FAERS Safety Report 11598502 (Version 1)
Quarter: 2015Q4

REPORT INFORMATION
  Report Type: Spontaneous
  Country: IT (occurrence: IT)
  Receive Date: 20151006
  Receipt Date: 20151006
  Transmission Date: 20160304
  Serious: Yes (Disabling, Other)
  Sender: FDA-Public Use
  Company Number: IT-BRISTOL-MYERS SQUIBB COMPANY-BMS-2015-065476

PATIENT
  Age: 45 Year
  Sex: Male

DRUGS (10)
  1. LAMICTAL [Concomitant]
     Active Substance: LAMOTRIGINE
     Indication: PRODUCT USED FOR UNKNOWN INDICATION
     Route: 065
  2. RAMIPRIL. [Concomitant]
     Active Substance: RAMIPRIL
     Indication: PRODUCT USED FOR UNKNOWN INDICATION
     Route: 065
  3. NEBIVOLOL. [Concomitant]
     Active Substance: NEBIVOLOL
     Indication: PRODUCT USED FOR UNKNOWN INDICATION
     Route: 065
  4. AMLODIPINE [Concomitant]
     Active Substance: AMLODIPINE BESYLATE
     Indication: PRODUCT USED FOR UNKNOWN INDICATION
     Route: 065
  5. ACETYLSALICYLIC ACID [Concomitant]
     Active Substance: ASPIRIN
     Indication: PRODUCT USED FOR UNKNOWN INDICATION
     Dosage: 100 MG, QD
     Route: 048
  6. METFORMIN HYDROCHLORIDE. [Suspect]
     Active Substance: METFORMIN HYDROCHLORIDE
     Indication: DIABETES MELLITUS
     Dosage: 3000 MG, UNK
     Route: 048
     Dates: start: 20140101, end: 20150304
  7. MIRTAZAPINE. [Concomitant]
     Active Substance: MIRTAZAPINE
     Indication: PRODUCT USED FOR UNKNOWN INDICATION
     Route: 065
  8. LITHIUM CARBONATE. [Concomitant]
     Active Substance: LITHIUM CARBONATE
     Indication: PRODUCT USED FOR UNKNOWN INDICATION
     Route: 065
  9. HUMULIN NOS [Suspect]
     Active Substance: INSULIN HUMAN
     Indication: DIABETES MELLITUS
     Dosage: UNK UNK, QD
     Route: 058
     Dates: start: 20140101, end: 20150304
  10. RIVOTRIL [Concomitant]
     Active Substance: CLONAZEPAM
     Indication: PRODUCT USED FOR UNKNOWN INDICATION
     Route: 065

REACTIONS (2)
  - Chest pain [Recovering/Resolving]
  - Hypoglycaemia [Recovering/Resolving]

NARRATIVE: CASE EVENT DATE: 20150304
